FAERS Safety Report 21060916 (Version 4)
Quarter: 2022Q4

REPORT INFORMATION
  Report Type: Report from Study
  Country: US (occurrence: US)
  Receive Date: 20220709
  Receipt Date: 20221021
  Transmission Date: 20230112
  Serious: Yes (Hospitalization, Other)
  Sender: FDA-Public Use
  Company Number: US-NOVARTISPH-NVSC2022US153799

PATIENT
  Age: 52 Year
  Sex: Male

DRUGS (4)
  1. ENTRESTO [Suspect]
     Active Substance: SACUBITRIL\VALSARTAN
     Indication: Cardiac failure
     Dosage: UNK
     Route: 048
     Dates: start: 20220517
  2. ENTRESTO [Suspect]
     Active Substance: SACUBITRIL\VALSARTAN
     Dosage: UNK (DOUBLE DOSED)
     Route: 065
     Dates: start: 202205
  3. CARVEDILOL [Suspect]
     Active Substance: CARVEDILOL
     Indication: Product used for unknown indication
     Dosage: UNK
     Route: 048
     Dates: start: 202205
  4. CLARITIN [Suspect]
     Active Substance: LORATADINE
     Indication: Lacrimation increased
     Dosage: UNK
     Route: 065

REACTIONS (14)
  - Feeling hot [Recovered/Resolved]
  - Cardiac flutter [Unknown]
  - Heart rate increased [Unknown]
  - Urinary tract infection [Recovered/Resolved]
  - Prostatomegaly [Unknown]
  - Pulmonary mass [Unknown]
  - Lacrimation increased [Unknown]
  - Paraesthesia [Recovered/Resolved]
  - Palpitations [Recovered/Resolved]
  - Hyperhidrosis [Recovered/Resolved]
  - Dizziness postural [Unknown]
  - Hypotension [Unknown]
  - Dizziness [Recovered/Resolved]
  - Product dose omission issue [Unknown]

NARRATIVE: CASE EVENT DATE: 20220501
